FAERS Safety Report 9075205 (Version 1)
Quarter: 2013Q1

REPORT INFORMATION
  Report Type: Report from Study
  Country: US (occurrence: US)
  Receive Date: 20130129
  Receipt Date: 20130129
  Transmission Date: 20140127
  Serious: No
  Sender: FDA-Public Use
  Company Number: US-ABBOTT-12P-163-0925867-00

PATIENT
  Age: 56 Year
  Sex: Female

DRUGS (7)
  1. HUMIRA 40 MG/0.8 ML PEN [Suspect]
     Indication: PSORIASIS
     Dosage: INITIAL LOADING DOSE
     Dates: start: 20120406
  2. SYNTHROID [Concomitant]
     Indication: HYPOTHYROIDISM
     Dosage: 150 MG ALTERNATING DAYS WITH 175 MG
  3. ZOCOR [Concomitant]
     Indication: BLOOD CHOLESTEROL INCREASED
     Dosage: DAILY
  4. VIVELLE [Concomitant]
     Indication: OESTROGEN REPLACEMENT THERAPY
     Dosage: PATCH APPLIED TWICE WEEKLY
  5. CLOBEX [Concomitant]
     Indication: PSORIASIS
  6. VECTICAL [Concomitant]
     Indication: PSORIASIS
  7. AMBIEN [Concomitant]
     Indication: INSOMNIA

REACTIONS (1)
  - Pelvic pain [Not Recovered/Not Resolved]
